FAERS Safety Report 13689207 (Version 1)
Quarter: 2017Q2

REPORT INFORMATION
  Report Type: Spontaneous
  Country: SG (occurrence: US)
  Receive Date: 20170624
  Receipt Date: 20170624
  Transmission Date: 20170830
  Serious: No
  Sender: FDA-Public Use
  Company Number: None

PATIENT
  Age: 50 Year
  Sex: Female
  Weight: 53 kg

DRUGS (5)
  1. FEDAC (NOTE: ACTIVE INGREDIENTS: TRIPROLIDINE HCL 2.5MG AND PSEUDOEPHEDRINE HCL 60MG ) [Suspect]
     Active Substance: PSEUDOEPHEDRINE HYDROCHLORIDE\TRIPROLIDINE HYDROCHLORIDE
     Indication: NASAL CONGESTION
     Dosage: OTHER STRENGTH:MG;QUANTITY:0.5 TABLET(S);?
     Route: 048
     Dates: start: 20170624, end: 201706
  2. EVENING PRIMEROSE [Concomitant]
  3. MULTI-VITAMIN [Concomitant]
     Active Substance: .ALPHA.-TOCOPHEROL ACETATE, DL-\ASCORBIC ACID\CYANOCOBALAMIN\FLUORIDE ION\FOLIC ACID\NIACIN\PYRIDOXINE\RIBOFLAVIN\THIAMINE\VITAMIN A\VITAMIN D
  4. FEDAC (NOTE: ACTIVE INGREDIENTS: TRIPROLIDINE HCL 2.5MG AND PSEUDOEPHEDRINE HCL 60MG ) [Suspect]
     Active Substance: PSEUDOEPHEDRINE HYDROCHLORIDE\TRIPROLIDINE HYDROCHLORIDE
     Indication: SINUSITIS
     Dosage: OTHER STRENGTH:MG;QUANTITY:0.5 TABLET(S);?
     Route: 048
     Dates: start: 20170624, end: 201706
  5. OMEGA 3 [Concomitant]
     Active Substance: OMEGA-3 FATTY ACIDS

REACTIONS (1)
  - Nervousness [None]

NARRATIVE: CASE EVENT DATE: 20170624
